FAERS Safety Report 6657907-4 (Version None)
Quarter: 2010Q1

REPORT INFORMATION
  Report Type: 
  Country: None (occurrence: None)
  Receive Date: 20100326
  Receipt Date: 20100311
  Transmission Date: 20100710
  Serious: Yes (Life-Threatening, Hospitalization, Other)
  Sender: FDA-Public Use
  Company Number: LMI-2010-00010

PATIENT
  Age: 55 Year
  Sex: Male
  Weight: 98.3 kg

DRUGS (15)
  1. DEFINITY [Suspect]
     Indication: ECHOCARDIOGRAM
     Dosage: 5.0 ML OF NORMAL SALINE DILUTED
     Dates: start: 20100108, end: 20100108
  2. ASPIRIN [Concomitant]
  3. CARDIZEM DRIP (DILTIAZEM) [Concomitant]
  4. ATIVAN [Concomitant]
  5. DUONEB [Concomitant]
  6. GLUCOPHAGE [Concomitant]
  7. POTASSIUM CHLORIDE [Concomitant]
  8. LANOXIN [Concomitant]
  9. LOVENOX [Concomitant]
  10. NOVOLOG [Concomitant]
  11. LISINOPRIL [Concomitant]
  12. TOPROL-XL [Concomitant]
  13. TUSSIONEX (BROMHEXINE) (SUSPENSION) [Concomitant]
  14. ROCEPHIN [Concomitant]
  15. ZITHROMAX [Concomitant]

REACTIONS (10)
  - ATRIAL FIBRILLATION [None]
  - ATRIAL FLUTTER [None]
  - CARDIAC FAILURE CONGESTIVE [None]
  - CARDIOMEGALY [None]
  - PALPITATIONS [None]
  - PLEURAL EFFUSION [None]
  - PULMONARY OEDEMA [None]
  - RESPIRATORY ARREST [None]
  - SINUS TACHYCARDIA [None]
  - TREATMENT NONCOMPLIANCE [None]
